FAERS Safety Report 12902811 (Version 1)
Quarter: 2016Q4

REPORT INFORMATION
  Report Type: Spontaneous
  Country: US (occurrence: US)
  Receive Date: 20161102
  Receipt Date: 20161102
  Transmission Date: 20170207
  Serious: No
  Sender: FDA-Public Use
  Company Number: US-JNJFOC-20160914565

PATIENT
  Sex: Female

DRUGS (1)
  1. REMICADE [Suspect]
     Active Substance: INFLIXIMAB
     Indication: ACCIDENTAL EXPOSURE TO PRODUCT
     Route: 050

REACTIONS (2)
  - Laceration [Unknown]
  - Accidental exposure to product [Unknown]
